FAERS Safety Report 15753973 (Version 5)
Quarter: 2019Q3

REPORT INFORMATION
  Report Type: Report from Study
  Country: DE (occurrence: DE)
  Receive Date: 20181222
  Receipt Date: 20190823
  Transmission Date: 20191004
  Serious: Yes (Other)
  Sender: FDA-Public Use
  Company Number: DE-MYLANLABS-2018M1095212

PATIENT
  Age: 82 Year
  Sex: Female
  Weight: 55 kg

DRUGS (3)
  1. KISQALI [Suspect]
     Active Substance: RIBOCICLIB
     Indication: BREAST CANCER METASTATIC
     Dosage: 600 MILLIGRAM, QD (200X3, 3-0-0)
     Route: 048
     Dates: start: 20180518, end: 20180601
  2. KISQALI [Suspect]
     Active Substance: RIBOCICLIB
     Dosage: 600 MILLIGRAM, QD ((200X3, 3-0-0))
     Route: 048
     Dates: start: 20180604
  3. ANASTROZOLE. [Suspect]
     Active Substance: ANASTROZOLE
     Indication: BREAST CANCER METASTATIC
     Dosage: 1 MILLIGRAM, QD (1-0-0)
     Route: 048
     Dates: start: 20180518

REACTIONS (5)
  - Extrasystoles [Recovered/Resolved]
  - Nausea [Recovered/Resolved]
  - Osteoporosis [Not Recovered/Not Resolved]
  - Electrocardiogram QT prolonged [Recovered/Resolved]
  - Constipation [Recovered/Resolved]

NARRATIVE: CASE EVENT DATE: 20180601
